FAERS Safety Report 6179529-4 (Version None)
Quarter: 2009Q2

REPORT INFORMATION
  Report Type: 
  Country: None (occurrence: None)
  Receive Date: 20090505
  Receipt Date: 20090427
  Transmission Date: 20091009
  Serious: Yes (Hospitalization)
  Sender: FDA-Public Use
  Company Number: GB-ROCHE-630085

PATIENT
  Sex: Female
  Weight: 89.8 kg

DRUGS (6)
  1. ORLISTAT [Suspect]
     Indication: OBESITY
     Route: 048
     Dates: start: 20081006, end: 20090405
  2. METFORMIN HCL [Concomitant]
     Route: 048
  3. LEVOTHYROXINE SODIUM [Concomitant]
     Dosage: INDICATION : THYROID.
     Route: 048
  4. LISINOPRIL [Concomitant]
     Indication: HYPERTENSION
     Route: 048
  5. METHOTREXATE [Concomitant]
     Indication: ARTHRITIS
     Route: 048
  6. DICLOFENAC/MISOPROSTOL [Concomitant]
     Indication: ARTHRITIS
     Dosage: DRUG: ARTHRITEC
     Route: 048

REACTIONS (1)
  - DIVERTICULITIS [None]
